FAERS Safety Report 9337431 (Version 1)
Quarter: 2013Q2

REPORT INFORMATION
  Report Type: Spontaneous
  Country: US (occurrence: US)
  Receive Date: 20130607
  Receipt Date: 20130607
  Transmission Date: 20140414
  Serious: No
  Sender: FDA-Public Use
  Company Number: US-TEVA-410374USA

PATIENT
  Sex: Female
  Weight: 56.75 kg

DRUGS (3)
  1. NUVIGIL [Suspect]
     Indication: NARCOLEPSY
     Dates: start: 2010
  2. ORTHO-TRICYCLINE [Concomitant]
     Indication: CONTRACEPTION
  3. IMPLANON [Concomitant]
     Indication: CONTRACEPTION

REACTIONS (7)
  - Headache [Not Recovered/Not Resolved]
  - Nausea [Not Recovered/Not Resolved]
  - Gastrointestinal motility disorder [Not Recovered/Not Resolved]
  - Palpitations [Not Recovered/Not Resolved]
  - Feeling jittery [Not Recovered/Not Resolved]
  - Thirst [Not Recovered/Not Resolved]
  - Inappropriate schedule of drug administration [Unknown]
